FAERS Safety Report 5020196-0 (Version None)
Quarter: 2006Q2

REPORT INFORMATION
  Report Type: 
  Country: None (occurrence: None)
  Receive Date: 20060602
  Receipt Date: 20060511
  Transmission Date: 20061013
  Serious: Yes (Other)
  Sender: FDA-Public Use
  Company Number: AR200601000061

PATIENT
  Age: 11 Year
  Sex: Male
  Weight: 40 kg

DRUGS (2)
  1. STRATTERA [Suspect]
     Indication: ATTENTION DEFICIT/HYPERACTIVITY DISORDER
     Dosage: 25 MG, DAILY (1/D), ORAL
     Route: 048
     Dates: start: 20050501, end: 20060101
  2. RISPERIDONE [Concomitant]

REACTIONS (2)
  - BENIGN INTRACRANIAL HYPERTENSION [None]
  - PAPILLOEDEMA [None]
